FAERS Safety Report 18322454 (Version 2)
Quarter: 2025Q2

REPORT INFORMATION
  Report Type: Spontaneous
  Country: NL (occurrence: NL)
  Receive Date: 20200929
  Receipt Date: 20250624
  Transmission Date: 20250717
  Serious: Yes (Life-Threatening, Other)
  Sender: AUROBINDO
  Company Number: NL-PFIZER INC-2020363308

PATIENT
  Age: 78 Year
  Sex: Female

DRUGS (6)
  1. TRANEXAMIC ACID [Suspect]
     Active Substance: TRANEXAMIC ACID
     Indication: Angioedema
     Route: 065
  2. DANAZOL [Concomitant]
     Active Substance: DANAZOL
     Indication: Angioedema
     Dosage: 200 MILLIGRAM, TWO TIMES A DAY
     Route: 065
  3. DANAZOL [Concomitant]
     Active Substance: DANAZOL
     Dosage: 100 MILLIGRAM, ONCE A DAY
     Route: 065
  4. LENALIDOMIDE [Concomitant]
     Active Substance: LENALIDOMIDE
     Indication: Plasma cell myeloma
     Route: 065
  5. DEXAMETHASONE [Concomitant]
     Active Substance: DEXAMETHASONE
     Indication: Plasma cell myeloma
     Route: 065
  6. PAMIDRONIC ACID [Concomitant]
     Active Substance: PAMIDRONIC ACID
     Indication: Plasma cell myeloma
     Route: 065

REACTIONS (1)
  - Drug ineffective [Recovered/Resolved]
